FAERS Safety Report 17192397 (Version 2)
Quarter: 2020Q2

REPORT INFORMATION
  Report Type: Spontaneous
  Country: US (occurrence: US)
  Receive Date: 20191223
  Receipt Date: 20200525
  Transmission Date: 20200713
  Serious: Yes (Other)
  Sender: FDA-Public Use
  Company Number: US-LEO PHARMA-327094

PATIENT
  Sex: Male

DRUGS (2)
  1. PICATO [Suspect]
     Active Substance: INGENOL MEBUTATE
     Indication: ACTINIC KERATOSIS
     Route: 061
     Dates: start: 20191210, end: 20191212
  2. PICATO [Suspect]
     Active Substance: INGENOL MEBUTATE

REACTIONS (4)
  - Basal cell carcinoma [Not Recovered/Not Resolved]
  - Inappropriate schedule of product administration [Unknown]
  - Nightmare [Recovered/Resolved with Sequelae]
  - Headache [Recovered/Resolved]

NARRATIVE: CASE EVENT DATE: 20191211
